FAERS Safety Report 8953448 (Version 1)
Quarter: 2012Q4

REPORT INFORMATION
  Report Type: Report from Study
  Country: US (occurrence: US)
  Receive Date: 20121206
  Receipt Date: 20121206
  Transmission Date: 20130627
  Serious: Yes (Hospitalization)
  Sender: FDA-Public Use
  Company Number: US-GLAXOSMITHKLINE-A1004080A

PATIENT
  Age: 67 Year
  Sex: Female
  Weight: 57.2 kg

DRUGS (2)
  1. LAPATINIB [Suspect]
     Indication: BREAST CANCER
     Dosage: 1250MG Per day
     Route: 048
     Dates: start: 20100301
  2. CAPECITABINE [Suspect]
     Indication: BREAST CANCER
     Dosage: 1450MG Twice per day
     Route: 048
     Dates: start: 20100301

REACTIONS (1)
  - Hyponatraemia [Recovered/Resolved]
